FAERS Safety Report 15861455 (Version 2)
Quarter: 2019Q1

REPORT INFORMATION
  Report Type: Report from Study
  Country: KR (occurrence: KR)
  Receive Date: 20190124
  Receipt Date: 20190301
  Transmission Date: 20190417
  Serious: Yes (Hospitalization)
  Sender: FDA-Public Use
  Company Number: KR-SAKK-2019SA015452AA

PATIENT
  Age: 63 Year
  Sex: Female

DRUGS (1)
  1. INSULIN GLARGINE [Suspect]
     Active Substance: INSULIN GLARGINE
     Indication: DIABETES MELLITUS
     Dosage: 6 U, QD
     Route: 058
     Dates: start: 20181117, end: 201901

REACTIONS (1)
  - Cystocele [Recovered/Resolved]
